FAERS Safety Report 6124849-2 (Version None)
Quarter: 2009Q1

REPORT INFORMATION
  Report Type: 
  Country: None (occurrence: None)
  Receive Date: 20090319
  Receipt Date: 20090305
  Transmission Date: 20090719
  Serious: Yes (Hospitalization)
  Sender: FDA-Public Use
  Company Number: DE-PFIZER INC-2009178982

PATIENT

DRUGS (6)
  1. EXEMESTANE [Suspect]
     Indication: BREAST CANCER FEMALE
     Dosage: 25 MG, 1X/DAY
     Route: 048
     Dates: start: 20080229
  2. SIMVASTATIN [Concomitant]
     Indication: HYPERCHOLESTEROLAEMIA
     Dosage: UNK
  3. PERAZINE [Concomitant]
     Indication: SCHIZOPHRENIA
     Dosage: 100 MG, 2X/DAY
  4. AMITRIPTYLINE [Concomitant]
     Indication: SCHIZOPHRENIA
     Dosage: 75 MG, 2X/DAY
  5. ACETYLSALICYLIC ACID [Concomitant]
     Indication: PLATELET AGGREGATION INHIBITION
     Dosage: 100 MG, 1X/DAY
  6. CLEXANE [Concomitant]
     Indication: THROMBOSIS PROPHYLAXIS

REACTIONS (1)
  - GAIT DISTURBANCE [None]
